FAERS Safety Report 4391314-2 (Version None)
Quarter: 2004Q2

REPORT INFORMATION
  Report Type: 
  Country: None (occurrence: None)
  Receive Date: 20040621
  Receipt Date: 20031106
  Transmission Date: 20050107
  Serious: Yes (Other)
  Sender: FDA-Public Use
  Company Number: USA-2003-0010671

PATIENT
  Age: 45 Year
  Sex: Male
  Weight: 88.4 kg

DRUGS (6)
  1. OXYCONTIN [Suspect]
     Indication: PAIN
     Dosage: 40 MG, Q8H, ORAL
     Route: 048
     Dates: start: 20020510, end: 20030724
  2. OXYCODONE HCL [Suspect]
     Indication: PAIN
     Dosage: 5 MG, SEE TEXT, ORAL
     Route: 048
  3. EFFEXOR [Concomitant]
  4. SOMA [Concomitant]
  5. ZANAFLEX [Concomitant]
  6. KLONOPIN [Concomitant]

REACTIONS (1)
  - DRUG ABUSER [None]
